FAERS Safety Report 7216468-1 (Version None)
Quarter: 2011Q1

REPORT INFORMATION
  Report Type: 
  Country: None (occurrence: None)
  Receive Date: 20110107
  Receipt Date: 20110105
  Transmission Date: 20110831
  Serious: Yes (Other)
  Sender: FDA-Public Use
  Company Number: US-AMGEN-USASP2011000577

PATIENT

DRUGS (2)
  1. ENBREL [Suspect]
     Indication: PSORIASIS
  2. ENBREL [Suspect]
     Indication: PSORIATIC ARTHROPATHY
     Dates: start: 20040712

REACTIONS (11)
  - PERIORBITAL HAEMATOMA [None]
  - INSOMNIA [None]
  - LUNG DISORDER [None]
  - PNEUMONIA [None]
  - FALL [None]
  - DYSPNOEA [None]
  - SLEEP APNOEA SYNDROME [None]
  - SKELETAL INJURY [None]
  - JOINT INJURY [None]
  - ARTHRALGIA [None]
  - HIATUS HERNIA [None]
